FAERS Safety Report 5678774-1 (Version None)
Quarter: 2008Q1

REPORT INFORMATION
  Report Type: 
  Country: None (occurrence: None)
  Receive Date: 20080324
  Receipt Date: 20080324
  Transmission Date: 20080703
  Serious: No
  Sender: FDA-Public Use
  Company Number: None

PATIENT
  Age: 44 Year
  Sex: Female
  Weight: 47.6277 kg

DRUGS (4)
  1. PAXIL CR [Suspect]
     Indication: ANXIETY
     Dosage: 12.5MG DAILY PO
     Route: 048
     Dates: start: 20051201, end: 20061201
  2. PAXIL CR [Suspect]
     Indication: MIGRAINE
     Dosage: 12.5MG DAILY PO
     Route: 048
     Dates: start: 20051201, end: 20061201
  3. PAROXETINE [Suspect]
     Indication: ANXIETY
     Dosage: 10MG DAILY PO
     Route: 048
     Dates: start: 20061201, end: 20071201
  4. PAROXETINE [Suspect]
     Indication: MIGRAINE
     Dosage: 10MG DAILY PO
     Route: 048
     Dates: start: 20061201, end: 20071201

REACTIONS (11)
  - DRUG INEFFECTIVE [None]
  - DRUG WITHDRAWAL SYNDROME [None]
  - EAR PAIN [None]
  - HORMONE LEVEL ABNORMAL [None]
  - INFLAMMATION [None]
  - INNER EAR DISORDER [None]
  - MALAISE [None]
  - NO THERAPEUTIC RESPONSE [None]
  - QUALITY OF LIFE DECREASED [None]
  - TINNITUS [None]
  - UNEVALUABLE EVENT [None]
